FAERS Safety Report 5053462-3 (Version None)
Quarter: 2006Q3

REPORT INFORMATION
  Report Type: 
  Country: None (occurrence: None)
  Receive Date: 20060718
  Receipt Date: 20060706
  Transmission Date: 20061208
  Serious: Yes (Hospitalization)
  Sender: FDA-Public Use
  Company Number: AR-JNJFOC-20060702011

PATIENT
  Age: 12 Month
  Sex: Female

DRUGS (2)
  1. IBUPIRAC [Suspect]
     Dosage: UNKNOWN DOSE GIVEN IN DOSE CUP
  2. IBUPIRAC [Suspect]
     Indication: PYREXIA

REACTIONS (2)
  - DRUG INEFFECTIVE [None]
  - KAWASAKI'S DISEASE [None]
